FAERS Safety Report 12467631 (Version 1)
Quarter: 2016Q2

REPORT INFORMATION
  Report Type: Spontaneous
  Country: US (occurrence: US)
  Receive Date: 20160615
  Receipt Date: 20160615
  Transmission Date: 20160815
  Serious: Yes (Hospitalization)
  Sender: FDA-Public Use
  Company Number: US-RAPTOR PHARMACEUTICALS, INC.-RAP-001077-2016

PATIENT
  Sex: Male

DRUGS (1)
  1. PROCYSBI DELAYED-RELEASE [Suspect]
     Active Substance: CYSTEAMINE BITARTRATE
     Indication: CYSTINOSIS
     Dosage: 1275 MG EVERY 12 HOURS
     Route: 048
     Dates: start: 20140124

REACTIONS (4)
  - Cytomegalovirus infection [Unknown]
  - Decreased appetite [Unknown]
  - Pyrexia [Unknown]
  - Diarrhoea [Unknown]
